FAERS Safety Report 7509431-4 (Version None)
Quarter: 2011Q2

REPORT INFORMATION
  Report Type: 
  Country: None (occurrence: None)
  Receive Date: 20110527
  Receipt Date: 20110512
  Transmission Date: 20111010
  Serious: Yes (Other)
  Sender: FDA-Public Use
  Company Number: DE-ROCHE-777704

PATIENT
  Sex: Female

DRUGS (2)
  1. AVASTIN [Suspect]
     Route: 065
  2. XELODA [Suspect]
     Route: 065

REACTIONS (1)
  - CARDITIS [None]
